FAERS Safety Report 17165907 (Version 1)
Quarter: 2019Q4

REPORT INFORMATION
  Report Type: Spontaneous
  Country: CN (occurrence: CN)
  Receive Date: 20191217
  Receipt Date: 20191217
  Transmission Date: 20200122
  Serious: Yes (Other)
  Sender: FDA-Public Use
  Company Number: CN-ASTRAZENECA-2019SF77189

PATIENT
  Age: 896 Month
  Sex: Male
  Weight: 50 kg

DRUGS (1)
  1. IRESSA [Suspect]
     Active Substance: GEFITINIB
     Indication: NON-SMALL CELL LUNG CANCER
     Dosage: 1 TIME A DAY, 1 TABLET ONCE
     Route: 048

REACTIONS (4)
  - Pulmonary oedema [Recovering/Resolving]
  - Drug resistance [Unknown]
  - Lung disorder [Not Recovered/Not Resolved]
  - Weight decreased [Unknown]

NARRATIVE: CASE EVENT DATE: 201908
